FAERS Safety Report 6190759-8 (Version None)
Quarter: 2009Q2

REPORT INFORMATION
  Report Type: 
  Country: None (occurrence: None)
  Receive Date: 20090513
  Receipt Date: 20090513
  Transmission Date: 20091009
  Serious: No
  Sender: FDA-Public Use
  Company Number: None

PATIENT
  Sex: Male
  Weight: 50 kg

DRUGS (2)
  1. RANITIDINE [Suspect]
     Indication: PROPHYLAXIS
     Dosage: 50 MG Q8H IV
     Route: 042
     Dates: start: 20090425, end: 20090427
  2. RANITIDINE [Suspect]
     Indication: STRESS ULCER
     Dosage: 50 MG Q8H IV
     Route: 042
     Dates: start: 20090425, end: 20090427

REACTIONS (1)
  - DRUG HYPERSENSITIVITY [None]
